FAERS Safety Report 15352466 (Version 1)
Quarter: 2018Q3

REPORT INFORMATION
  Report Type: Spontaneous
  Country: CH (occurrence: CH)
  Receive Date: 20180905
  Receipt Date: 20180905
  Transmission Date: 20181010
  Serious: Yes (Other)
  Sender: FDA-Public Use
  Company Number: CH-PFIZER INC-2018349391

PATIENT
  Age: 42 Year
  Sex: Male

DRUGS (10)
  1. TEMESTA EXPIDET [Suspect]
     Active Substance: LORAZEPAM
     Dosage: 1 MG, 1X/DAY (TAKEN ABOUT 2?3 X/ WEEK, AS NECESSARY)
     Route: 048
  2. CYMBALTA [Suspect]
     Active Substance: DULOXETINE HYDROCHLORIDE
     Dosage: 30 MG, 1X/DAY
     Route: 048
     Dates: start: 20180802, end: 20180813
  3. CLEXANE [Suspect]
     Active Substance: ENOXAPARIN SODIUM
     Dosage: 40 MG, 1X/DAY
     Route: 058
     Dates: start: 20180713
  4. MABTHERA [Suspect]
     Active Substance: RITUXIMAB
     Dosage: 1 G, SINGLE (IN TOTAL)
     Route: 042
     Dates: start: 20180730, end: 20180730
  5. CYMBALTA [Suspect]
     Active Substance: DULOXETINE HYDROCHLORIDE
     Dosage: 60 MG, 1X/DAY
     Route: 048
     Dates: start: 20180814
  6. MABTHERA [Suspect]
     Active Substance: RITUXIMAB
     Dosage: 1 G, SINGLE (IN TOTAL)
     Route: 042
     Dates: start: 20180712, end: 20180712
  7. ZOLPIDEM [Suspect]
     Active Substance: ZOLPIDEM\ZOLPIDEM TARTRATE
     Dosage: 10 MG, 1X/DAY (TAKEN ABOUT 2?3X/WEEK, AS NECESSARY)
     Route: 048
  8. DAFALGAN [Suspect]
     Active Substance: ACETAMINOPHEN
     Dosage: AS NECESSARY/ DRUG NOT ADMINISTERED
  9. KIOVIG [Suspect]
     Active Substance: HUMAN IMMUNOGLOBULIN G
     Dosage: 40 G, 1X/DAY
     Route: 042
     Dates: start: 20180806, end: 20180810
  10. IRFEN [Suspect]
     Active Substance: IBUPROFEN
     Dosage: AS NECESSARY/ DRUG NOT ADMINISTERED
     Dates: start: 20180713

REACTIONS (2)
  - Neutropenia [Unknown]
  - Leukopenia [Unknown]

NARRATIVE: CASE EVENT DATE: 20180820
